FAERS Safety Report 18831280 (Version 1)
Quarter: 2021Q1

REPORT INFORMATION
  Report Type: Spontaneous
  Country: US (occurrence: US)
  Receive Date: 20210203
  Receipt Date: 20210203
  Transmission Date: 20210419
  Serious: No
  Sender: FDA-Public Use
  Company Number: US-ALLERGAN-2037326US

PATIENT
  Sex: Female

DRUGS (4)
  1. BOTOX [Suspect]
     Active Substance: ONABOTULINUMTOXINA
     Indication: MIGRAINE
     Dosage: UNK, SINGLE
     Route: 030
     Dates: start: 20200828, end: 20200828
  2. MEXILETINE [Concomitant]
     Active Substance: MEXILETINE
     Indication: HEART RATE IRREGULAR
     Dosage: UNK
  3. AMILORIDE [Concomitant]
     Active Substance: AMILORIDE
     Indication: DIURETIC THERAPY
     Dosage: UNK
  4. POTASSIUM CHLORIDE. [Concomitant]
     Active Substance: POTASSIUM CHLORIDE
     Indication: HYPOKALAEMIA
     Dosage: UNK

REACTIONS (1)
  - Drug ineffective [Unknown]
